FAERS Safety Report 10028086 (Version 2)
Quarter: 2014Q2

REPORT INFORMATION
  Report Type: Spontaneous
  Country: FR (occurrence: FR)
  Receive Date: 20140321
  Receipt Date: 20140519
  Transmission Date: 20141212
  Serious: Yes (Hospitalization)
  Sender: FDA-Public Use
  Company Number: FR-SA-2014SA031569

PATIENT
  Age: 50 Year
  Sex: Male

DRUGS (4)
  1. LANTUS [Suspect]
     Indication: DIABETES MELLITUS
     Route: 058
     Dates: start: 201402, end: 201403
  2. LANTUS [Suspect]
     Indication: DIABETES MELLITUS
     Route: 065
  3. APIDRA [Suspect]
     Indication: DIABETES MELLITUS
     Route: 058
     Dates: start: 201402, end: 201403
  4. ORAL ANTIDIABETICS [Concomitant]
     Indication: DIABETES MELLITUS

REACTIONS (4)
  - Nephrotic syndrome [Recovering/Resolving]
  - Oedema peripheral [Recovering/Resolving]
  - Weight increased [Recovering/Resolving]
  - Face oedema [Recovering/Resolving]
